FAERS Safety Report 13365659 (Version 1)
Quarter: 2017Q1

REPORT INFORMATION
  Report Type: Spontaneous
  Country: US (occurrence: US)
  Receive Date: 20170323
  Receipt Date: 20170323
  Transmission Date: 20170429
  Serious: No
  Sender: FDA-Public Use
  Company Number: US-WARNER CHILCOTT-2016-001762

PATIENT
  Age: 60 Year
  Sex: Female
  Weight: 58.96 kg

DRUGS (3)
  1. VITAMIN D                          /00107901/ [Concomitant]
     Active Substance: ERGOCALCIFEROL
     Dosage: UNK
  2. CALCIUM [Concomitant]
     Active Substance: CALCIUM
     Dosage: UNK
  3. ESTRACE [Suspect]
     Active Substance: ESTRADIOL
     Indication: VULVOVAGINAL DRYNESS
     Dosage: 1 G, 1/WEEK
     Route: 067
     Dates: start: 201607

REACTIONS (1)
  - Application site discharge [Not Recovered/Not Resolved]

NARRATIVE: CASE EVENT DATE: 201607
